FAERS Safety Report 7803426-9 (Version None)
Quarter: 2011Q4

REPORT INFORMATION
  Report Type: 
  Country: None (occurrence: None)
  Receive Date: 20111007
  Receipt Date: 20110131
  Transmission Date: 20120403
  Serious: No
  Sender: FDA-Public Use
  Company Number: US-BAYER-2011-010986

PATIENT
  Age: 60 Year
  Sex: Male
  Weight: 95.45 kg

DRUGS (4)
  1. ALPRAZOLAM [Concomitant]
     Dosage: UNK UNK, PRN
  2. DIOVAN HCT [Concomitant]
  3. ANDROGEL [Suspect]
     Indication: BLOOD TESTOSTERONE DECREASED
     Dosage: 1.25 G, QD
     Dates: start: 20100101
  4. CIPRO [Suspect]
     Indication: SINUSITIS
     Dosage: UNK
     Dates: start: 20101201, end: 20101201

REACTIONS (1)
  - ANXIETY [None]
